FAERS Safety Report 6609527-5 (Version None)
Quarter: 2010Q1

REPORT INFORMATION
  Report Type: 
  Country: None (occurrence: None)
  Receive Date: 20100212
  Receipt Date: 20091202
  Transmission Date: 20100710
  Serious: No
  Sender: FDA-Public Use
  Company Number: 1000010522

PATIENT
  Sex: Male

DRUGS (1)
  1. SAVELLA [Suspect]
     Dosage: ORAL
     Route: 048

REACTIONS (1)
  - GROIN PAIN [None]
